FAERS Safety Report 9034690 (Version 3)
Quarter: 2013Q4

REPORT INFORMATION
  Report Type: Spontaneous
  Country: GB (occurrence: None)
  Receive Date: 20130115
  Receipt Date: 20131028
  Transmission Date: 20140711
  Serious: Yes (Other)
  Sender: FDA-Public Use
  Company Number: HRA-CDB20130002

PATIENT
  Age: 14 Year
  Sex: Female

DRUGS (1)
  1. ELLAONE [Suspect]
     Indication: POST COITAL CONTRACEPTION
     Route: 048
     Dates: start: 20121121, end: 20121121

REACTIONS (4)
  - Pregnancy test positive [None]
  - Pregnancy after post coital contraception [None]
  - Exposure during pregnancy [None]
  - Abortion induced [None]
